FAERS Safety Report 25619933 (Version 2)
Quarter: 2025Q4

REPORT INFORMATION
  Report Type: Spontaneous
  Country: CA (occurrence: CA)
  Receive Date: 20250730
  Receipt Date: 20251113
  Transmission Date: 20260118
  Serious: Yes (Hospitalization, Other)
  Sender: ACCORD
  Company Number: None

PATIENT
  Age: 16 Month
  Sex: Female

DRUGS (30)
  1. AMLODIPINE [Suspect]
     Active Substance: AMLODIPINE BESYLATE
     Indication: Product used for unknown indication
     Route: 065
  2. TACROLIMUS [Suspect]
     Active Substance: TACROLIMUS
     Indication: Multivisceral transplantation
     Route: 065
  3. MYCOPHENOLATE MOFETIL [Suspect]
     Active Substance: MYCOPHENOLATE MOFETIL
     Indication: Product used for unknown indication
     Route: 065
  4. SIROLIMUS [Suspect]
     Active Substance: SIROLIMUS
     Indication: Product used for unknown indication
     Route: 065
  5. PREDNISONE [Suspect]
     Active Substance: PREDNISONE
     Indication: Multivisceral transplantation
     Route: 065
  6. AMOXICILLIN [Concomitant]
     Active Substance: AMOXICILLIN
  7. CEFAZOLIN [Concomitant]
     Active Substance: CEFAZOLIN
     Indication: Linear IgA disease
  8. DAPSONE [Concomitant]
     Active Substance: DAPSONE
     Indication: Asplenia
  9. PIPERACILLIN AND TAZOBACTAM [Concomitant]
     Active Substance: PIPERACILLIN SODIUM\TAZOBACTAM SODIUM
  10. VANCOMYCIN [Concomitant]
     Active Substance: VANCOMYCIN
     Indication: Evidence based treatment
  11. TACROLIMUS [Concomitant]
     Active Substance: TACROLIMUS
     Indication: Rash pruritic
     Dosage: TOPICAL
  12. BETAMETHASONE [Concomitant]
     Active Substance: BETAMETHASONE
     Indication: Rash pruritic
     Route: 061
  13. BETAMETHASONE [Concomitant]
     Active Substance: BETAMETHASONE
     Indication: Rash pruritic
     Route: 061
  14. CLOBETASOL [Concomitant]
     Active Substance: CLOBETASOL
     Indication: Blister
     Route: 061
  15. DOXEPIN [Concomitant]
     Active Substance: DOXEPIN
     Indication: Linear IgA disease
     Route: 048
  16. ENALAPRIL [Concomitant]
     Active Substance: ENALAPRIL
     Indication: Product used for unknown indication
  17. FLOVENT [Concomitant]
     Active Substance: FLUTICASONE PROPIONATE
     Indication: Skin ulcer
     Route: 061
  18. HYDROXYZINE [Concomitant]
     Active Substance: HYDROXYZINE HYDROCHLORIDE
     Indication: Linear IgA disease
     Route: 048
  19. IMMUNOGLOBULINS [Concomitant]
     Indication: Linear IgA disease
     Route: 042
  20. METHYLENE BLUE [Concomitant]
     Active Substance: METHYLENE BLUE
     Indication: Blood methaemoglobin
     Route: 048
  21. METHYLPREDNISOLONE [Concomitant]
     Active Substance: METHYLPREDNISOLONE
     Indication: Methaemoglobinaemia
     Route: 048
  22. MUPIROCIN [Concomitant]
     Active Substance: MUPIROCIN
     Indication: Skin ulcer
     Dosage: OINTMENT TOPICAL
     Route: 061
  23. MYCOPHENOLIC ACID [Concomitant]
     Active Substance: MYCOPHENOLIC ACID
     Indication: Multivisceral transplantation
  24. RUPATADINE [Concomitant]
     Active Substance: RUPATADINE
     Indication: Linear IgA disease
     Route: 048
  25. SIROLIMUS [Concomitant]
     Active Substance: SIROLIMUS
     Indication: Multivisceral transplantation
  26. DAPSONE [Concomitant]
     Active Substance: DAPSONE
     Indication: Asplenia
     Dosage: 1 EVERY 1 DAY
  27. DAPSONE [Concomitant]
     Active Substance: DAPSONE
     Indication: Asplenia
  28. DAPSONE [Concomitant]
     Active Substance: DAPSONE
  29. PREDNISONE [Suspect]
     Active Substance: PREDNISONE
     Indication: Multivisceral transplantation
     Route: 065
  30. PREDNISONE [Suspect]
     Active Substance: PREDNISONE
     Indication: Multivisceral transplantation
     Route: 065

REACTIONS (6)
  - Linear IgA disease [Recovering/Resolving]
  - Norovirus infection [Recovering/Resolving]
  - Urinary tract infection [Recovering/Resolving]
  - Condition aggravated [Recovering/Resolving]
  - Off label use [Recovering/Resolving]
  - Eosinophilia [Recovering/Resolving]
